FAERS Safety Report 4847229-6 (Version None)
Quarter: 2005Q4

REPORT INFORMATION
  Report Type: 
  Country: None (occurrence: None)
  Receive Date: 20051207
  Receipt Date: 20040825
  Transmission Date: 20060501
  Serious: Yes (Disabling)
  Sender: FDA-Public Use
  Company Number: FR-GLAXOSMITHKLINE-B0344391A

PATIENT
  Age: 73 Year
  Sex: Male
  Weight: 112 kg

DRUGS (7)
  1. AVANDIA [Suspect]
     Dosage: 4MG PER DAY
     Route: 048
     Dates: start: 20020101, end: 20040101
  2. DEROXAT [Suspect]
     Dosage: 20MG PER DAY
     Route: 048
     Dates: start: 19990101
  3. METFORMIN [Concomitant]
     Dosage: 1700MG PER DAY
     Route: 048
  4. DETENSIEL [Concomitant]
     Indication: HYPERTENSION
     Route: 048
  5. ALDALIX [Concomitant]
     Indication: HYPERTENSION
     Route: 048
  6. COZAAR [Concomitant]
     Indication: HYPERTENSION
     Route: 048
  7. IMODIUM [Concomitant]
     Route: 048

REACTIONS (6)
  - ASTHENOPIA [None]
  - DIARRHOEA [None]
  - DYSPNOEA [None]
  - FLATULENCE [None]
  - VISION BLURRED [None]
  - WEIGHT INCREASED [None]
